FAERS Safety Report 11377705 (Version 2)
Quarter: 2015Q3

REPORT INFORMATION
  Report Type: Spontaneous
  Country: US (occurrence: US)
  Receive Date: 20150811
  Receipt Date: 20150903
  Transmission Date: 20151125
  Serious: Yes (Hospitalization)
  Sender: FDA-Public Use
  Company Number: US-ELI_LILLY_AND_COMPANY-US200906000795

PATIENT
  Age: 0 Year
  Sex: Male
  Weight: 2.54 kg

DRUGS (4)
  1. TYLENOL WITH CODEINE [Concomitant]
     Active Substance: ACETAMINOPHEN\CODEINE PHOSPHATE
     Indication: FIBROMYALGIA
     Dosage: UNK, AS NEEDED
     Route: 064
  2. HUMULIN N [Suspect]
     Active Substance: INSULIN HUMAN
     Route: 064
     Dates: start: 199310, end: 19940701
  3. HUMULIN R [Suspect]
     Active Substance: INSULIN HUMAN
     Route: 064
     Dates: start: 199310, end: 19940701
  4. HUMALOG [Suspect]
     Active Substance: INSULIN LISPRO
     Route: 064
     Dates: start: 199310, end: 19940701

REACTIONS (4)
  - Foetal exposure during pregnancy [Recovered/Resolved]
  - Jaundice [Unknown]
  - Blood glucose decreased [Recovered/Resolved]
  - Abdominal pain [Unknown]

NARRATIVE: CASE EVENT DATE: 199310
